FAERS Safety Report 9206873 (Version 1)
Quarter: 2013Q2

REPORT INFORMATION
  Report Type: Spontaneous
  Country: US (occurrence: None)
  Receive Date: 20130402
  Receipt Date: 20130402
  Transmission Date: 20140414
  Serious: Yes (Death)
  Sender: FDA-Public Use
  Company Number: None

PATIENT
  Age: 71 Year
  Sex: Male

DRUGS (3)
  1. STIVARGA 40MG BAYER [Suspect]
     Route: 048
     Dates: start: 20130214
  2. RITALIN 5 MG [Concomitant]
  3. CITALOPRAM 20 MG [Concomitant]

REACTIONS (1)
  - Death [None]
